FAERS Safety Report 5018520-8 (Version None)
Quarter: 2006Q2

REPORT INFORMATION
  Report Type: 
  Country: None (occurrence: None)
  Receive Date: 20060414
  Receipt Date: 20051230
  Transmission Date: 20061013
  Serious: No
  Sender: FDA-Public Use
  Company Number: 2006SP000006

PATIENT
  Age: 38 Year
  Sex: Female
  Weight: 68.9467 kg

DRUGS (4)
  1. LUNESTA [Suspect]
     Indication: INSOMNIA
     Dosage: SEE IMAGE
     Route: 048
     Dates: start: 20051101, end: 20060101
  2. LUNESTA [Suspect]
     Indication: INSOMNIA
     Dosage: SEE IMAGE
     Route: 048
     Dates: start: 20060127, end: 20060203
  3. ZOLOFT [Concomitant]
  4. NAPROXEN [Concomitant]

REACTIONS (3)
  - DYSGEUSIA [None]
  - EYE SWELLING [None]
  - RASH [None]
